FAERS Safety Report 4719395-4 (Version None)
Quarter: 2005Q3

REPORT INFORMATION
  Report Type: 
  Country: None (occurrence: None)
  Receive Date: 20050721
  Receipt Date: 20050225
  Transmission Date: 20060218
  Serious: Yes (Hospitalization)
  Sender: FDA-Public Use
  Company Number: PHBS2005UA03132

PATIENT
  Sex: Female

DRUGS (1)
  1. VOLTAREN [Suspect]
     Dosage: 75 MG, QD
     Route: 030

REACTIONS (3)
  - INJECTION SITE ABSCESS [None]
  - INJECTION SITE REACTION [None]
  - SURGERY [None]
